FAERS Safety Report 10936637 (Version 1)
Quarter: 2015Q1

REPORT INFORMATION
  Report Type: Spontaneous
  Country: US (occurrence: None)
  Receive Date: 20150129
  Receipt Date: 20150129
  Transmission Date: 20150721
  Serious: No
  Sender: FDA-Public Use
  Company Number: A-NJ2014-106065

PATIENT
  Age: 33 Year
  Sex: Female

DRUGS (12)
  1. OPSUMIT [Suspect]
     Active Substance: MACITENTAN
     Indication: PULMONARY ARTERIAL HYPERTENSION
     Route: 048
     Dates: start: 20140320
  2. TRINESSA (ETHINYLESTRADIOL, NORGESTIMATE) [Concomitant]
  3. SINGULAIR (MONTELUKAST SODIUM) [Concomitant]
  4. POTASSIUM [Concomitant]
     Active Substance: POTASSIUM
  5. LORATADINE. [Concomitant]
     Active Substance: LORATADINE
  6. LASIX [Concomitant]
     Active Substance: FUROSEMIDE
  7. SILDENAFIL. [Concomitant]
     Active Substance: SILDENAFIL
  8. PREVACOD )LANSOPRAZOLE) [Concomitant]
  9. SPIRONOLACTONE. [Concomitant]
     Active Substance: SPIRONOLACTONE
  10. DIAZEPAM. [Concomitant]
     Active Substance: DIAZEPAM
  11. TRAMADOL [Concomitant]
     Active Substance: TRAMADOL
  12. GABAPENTIN. [Concomitant]
     Active Substance: GABAPENTIN

REACTIONS (1)
  - Alopecia [None]
